FAERS Safety Report 25013021 (Version 1)
Quarter: 2025Q1

REPORT INFORMATION
  Report Type: Spontaneous
  Country: CA (occurrence: CA)
  Receive Date: 20250226
  Receipt Date: 20250226
  Transmission Date: 20250409
  Serious: Yes (Hospitalization, Other)
  Sender: MYLAN
  Company Number: CA-MYLANLABS-2025M1016480

PATIENT
  Age: 92 Year
  Sex: Female

DRUGS (8)
  1. LYRICA [Suspect]
     Active Substance: PREGABALIN
     Indication: Post herpetic neuralgia
     Dosage: 50 MILLIGRAM, BID (2 EVERY 1 DAYS)
  2. LYRICA [Suspect]
     Active Substance: PREGABALIN
     Dosage: 50 MILLIGRAM, BID (2 EVERY 1 DAYS)
     Route: 048
  3. LYRICA [Suspect]
     Active Substance: PREGABALIN
     Dosage: 50 MILLIGRAM, BID (2 EVERY 1 DAYS)
     Route: 048
  4. LYRICA [Suspect]
     Active Substance: PREGABALIN
     Dosage: 50 MILLIGRAM, BID (2 EVERY 1 DAYS)
  5. HYDROMORPHONE [Concomitant]
     Active Substance: HYDROMORPHONE
  6. HYDROMORPHONE [Concomitant]
     Active Substance: HYDROMORPHONE
     Route: 065
  7. HYDROMORPHONE [Concomitant]
     Active Substance: HYDROMORPHONE
     Route: 065
  8. HYDROMORPHONE [Concomitant]
     Active Substance: HYDROMORPHONE

REACTIONS (6)
  - Cervical vertebral fracture [Unknown]
  - Haemorrhage intracranial [Unknown]
  - Confusional state [Unknown]
  - Fall [Unknown]
  - Oedema [Unknown]
  - Somnolence [Unknown]
